FAERS Safety Report 15406266 (Version 1)
Quarter: 2018Q3

REPORT INFORMATION
  Report Type: Spontaneous
  Country: US (occurrence: US)
  Receive Date: 20180920
  Receipt Date: 20180920
  Transmission Date: 20181010
  Serious: Yes (Other)
  Sender: FDA-Public Use
  Company Number: US-BAYER-2018-172432

PATIENT
  Age: 78 Year
  Sex: Female

DRUGS (10)
  1. NEXAVAR [Suspect]
     Active Substance: SORAFENIB
     Indication: HEPATOCELLULAR CARCINOMA
     Dosage: 400 MG, BID
     Dates: start: 20180531, end: 2018
  2. LOSARTAN. [Concomitant]
     Active Substance: LOSARTAN
  3. FUROSEMIDE. [Concomitant]
     Active Substance: FUROSEMIDE
  4. PANTOPRAZOLE [Concomitant]
     Active Substance: PANTOPRAZOLE
     Indication: GASTROOESOPHAGEAL REFLUX DISEASE
  5. METOPROLOL. [Concomitant]
     Active Substance: METOPROLOL
  6. ISOSORBIDE. [Concomitant]
     Active Substance: ISOSORBIDE
  7. JANUVIA [Concomitant]
     Active Substance: SITAGLIPTIN PHOSPHATE
     Indication: DIABETES MELLITUS
  8. FENOFIBRATE. [Concomitant]
     Active Substance: FENOFIBRATE
  9. VITAMIN D [Concomitant]
     Active Substance: CHOLECALCIFEROL
  10. CLOPIDOGREL [Concomitant]
     Active Substance: CLOPIDOGREL BISULFATE

REACTIONS (1)
  - Hepatocellular carcinoma [Unknown]
